FAERS Safety Report 8928026 (Version 1)
Quarter: 2012Q4

REPORT INFORMATION
  Report Type: Spontaneous
  Country: US (occurrence: None)
  Receive Date: 20121121
  Receipt Date: 20121121
  Transmission Date: 20130627
  Serious: No
  Sender: FDA-Public Use
  Company Number: None

PATIENT
  Age: 61 Year
  Sex: Male
  Weight: 53.2 kg

DRUGS (1)
  1. NAFCILLIN [Suspect]
     Dosage: 2 GM Other IV
     Route: 042
     Dates: start: 20121010, end: 20121113

REACTIONS (3)
  - Abdominal pain [None]
  - Blood bilirubin increased [None]
  - Bilirubin conjugated increased [None]
